FAERS Safety Report 6109041-X (Version None)
Quarter: 2009Q1

REPORT INFORMATION
  Report Type: 
  Country: None (occurrence: None)
  Receive Date: 20090306
  Receipt Date: 20090224
  Transmission Date: 20090719
  Serious: Yes (Other)
  Sender: FDA-Public Use
  Company Number: GXKR2009IN02336

PATIENT
  Age: 78 Year
  Sex: Male

DRUGS (4)
  1. TRIFLUOPERAZINE HCL [Suspect]
     Indication: DEPRESSION
     Dosage: 2 MG, DAY; 1 MG, DAY; 3MG, DAY
  2. ANTIDEPRESSANTS (NO INGREDIENTS/SUBSTANCES) [Concomitant]
  3. ESCITALOPRAM [Concomitant]
  4. CLONAZEPAM [Concomitant]

REACTIONS (6)
  - ASTHENIA [None]
  - DRUG DEPENDENCE [None]
  - DRUG WITHDRAWAL SYNDROME [None]
  - DYSPHORIA [None]
  - INSOMNIA [None]
  - RESTLESSNESS [None]
